FAERS Safety Report 7003475-7 (Version None)
Quarter: 2010Q3

REPORT INFORMATION
  Report Type: 
  Country: None (occurrence: None)
  Receive Date: 20100916
  Receipt Date: 20100906
  Transmission Date: 20110219
  Serious: Yes (Other)
  Sender: FDA-Public Use
  Company Number: JP-1183205

PATIENT
  Age: 49 Year
  Sex: Male

DRUGS (4)
  1. TRAVATAN Z [Suspect]
     Indication: INTRAOCULAR PRESSURE INCREASED
     Dosage: 1 GTT QD OD, OPHTHALMIC
     Route: 047
     Dates: start: 20100217, end: 20100331
  2. TRAVATAN Z [Suspect]
     Indication: OPEN ANGLE GLAUCOMA
     Dosage: 1 GTT QD OD, OPHTHALMIC
     Route: 047
     Dates: start: 20100217, end: 20100331
  3. TRUSOPT (DORZOLAMDE HYDROCHLORIDE) [Concomitant]
  4. FLUMETHOLON (FLUOROMETHOLONE) [Concomitant]

REACTIONS (1)
  - INTRAOCULAR PRESSURE INCREASED [None]
